FAERS Safety Report 5255688-2 (Version None)
Quarter: 2007Q1

REPORT INFORMATION
  Report Type: 
  Country: None (occurrence: None)
  Receive Date: 20070305
  Receipt Date: 20070222
  Transmission Date: 20070707
  Serious: Yes (Other)
  Sender: FDA-Public Use
  Company Number: US-PFIZER INC-2007006362

PATIENT
  Sex: Male
  Weight: 36.3 kg

DRUGS (4)
  1. LYRICA [Suspect]
     Indication: NEURALGIA
  2. GABAPENTIN [Suspect]
     Indication: NEURALGIA
  3. NEURONTIN [Suspect]
  4. ALL OTHER THERAPEUTIC PRODUCTS [Concomitant]

REACTIONS (1)
  - PAIN [None]
